FAERS Safety Report 13592298 (Version 4)
Quarter: 2017Q3

REPORT INFORMATION
  Report Type: Report from Study
  Country: US (occurrence: US)
  Receive Date: 20170529
  Receipt Date: 20170908
  Transmission Date: 20171127
  Serious: Yes (Other)
  Sender: FDA-Public Use
  Company Number: PHEH2017US016136

PATIENT
  Sex: Female
  Weight: 111.11 kg

DRUGS (2)
  1. GILENYA [Suspect]
     Active Substance: FINGOLIMOD HYDROCHLORIDE
     Dosage: 0.5 MG, QD
     Route: 048
  2. GILENYA [Suspect]
     Active Substance: FINGOLIMOD HYDROCHLORIDE
     Indication: MULTIPLE SCLEROSIS
     Dosage: 0.5 MG, QD
     Route: 048
     Dates: start: 20151016

REACTIONS (11)
  - Gait inability [Unknown]
  - Feeling abnormal [Unknown]
  - Fear [Unknown]
  - Skin reaction [Unknown]
  - Memory impairment [Unknown]
  - Weight fluctuation [Unknown]
  - Malaise [Unknown]
  - Stress [Unknown]
  - Scratch [Unknown]
  - Confusional state [Unknown]
  - Central nervous system lesion [Unknown]
